FAERS Safety Report 9717155 (Version 3)
Quarter: 2013Q4

REPORT INFORMATION
  Report Type: Spontaneous
  Country: JP (occurrence: JP)
  Receive Date: 20131127
  Receipt Date: 20131230
  Transmission Date: 20140711
  Serious: Yes (Hospitalization, Other)
  Sender: FDA-Public Use
  Company Number: JP-MERCK-1311JPN010305

PATIENT
  Age: 64 Year
  Sex: Male

DRUGS (4)
  1. GLACTIV [Suspect]
     Indication: TYPE 2 DIABETES MELLITUS
     Dosage: 50 MG, QD
     Route: 048
     Dates: start: 20101104, end: 20131106
  2. GASTER D [Concomitant]
     Dosage: UNK
     Dates: end: 20131023
  3. AROTINOLOL HYDROCHLORIDE [Concomitant]
  4. AMARYL [Concomitant]
     Dosage: UNK
     Dates: start: 20101104, end: 20131106

REACTIONS (1)
  - Autoimmune pancreatitis [Not Recovered/Not Resolved]
